FAERS Safety Report 5663864-X (Version None)
Quarter: 2008Q1

REPORT INFORMATION
  Report Type: 
  Country: None (occurrence: None)
  Receive Date: 20080311
  Receipt Date: 20080220
  Transmission Date: 20080703
  Serious: Yes (Hospitalization, Other)
  Sender: FDA-Public Use
  Company Number: 2008EU000347

PATIENT
  Age: 36 Year
  Sex: Female

DRUGS (2)
  1. TACROLIMUS [Suspect]
     Indication: LIVER TRANSPLANT
     Dosage: /D
  2. ENCORTON (PREDNISONE ACETATE) [Suspect]
     Indication: LIVER TRANSPLANT
     Dosage: /D

REACTIONS (13)
  - COAGULOPATHY [None]
  - ENCEPHALOPATHY [None]
  - GENERAL PHYSICAL HEALTH DETERIORATION [None]
  - HAEMODIALYSIS [None]
  - HEPATIC FAILURE [None]
  - LIVER TRANSPLANT [None]
  - LYMPHOPROLIFERATIVE DISORDER [None]
  - MULTI-ORGAN FAILURE [None]
  - OESOPHAGEAL VARICES HAEMORRHAGE [None]
  - POST PROCEDURAL COMPLICATION [None]
  - RENAL FAILURE [None]
  - SUBILEUS [None]
  - UPPER RESPIRATORY TRACT INFECTION [None]
